FAERS Safety Report 7435181-9 (Version None)
Quarter: 2011Q2

REPORT INFORMATION
  Report Type: 
  Country: None (occurrence: None)
  Receive Date: 20110425
  Receipt Date: 20110420
  Transmission Date: 20111010
  Serious: Yes (Death)
  Sender: FDA-Public Use
  Company Number: PHHY2011US33895

PATIENT
  Sex: Male

DRUGS (5)
  1. METOPROLOL [Concomitant]
     Dosage: UNK
  2. LISINOPRIL [Concomitant]
     Dosage: UNK
  3. ASPIRIN [Concomitant]
     Dosage: UNK
  4. EXELON [Suspect]
     Dosage: 9.5 MG, DAILY
     Route: 062
  5. CARBIDOPA + LEVODOPA [Concomitant]
     Dosage: UNK

REACTIONS (2)
  - DEATH [None]
  - APHAGIA [None]
